FAERS Safety Report 9866121 (Version 2)
Quarter: 2014Q1

REPORT INFORMATION
  Report Type: Spontaneous
  Country: US (occurrence: US)
  Receive Date: 20140203
  Receipt Date: 20140203
  Transmission Date: 20141002
  Serious: No
  Sender: FDA-Public Use
  Company Number: US-ALLERGAN-1316515US

PATIENT
  Age: 87 Year
  Sex: Female

DRUGS (3)
  1. RESTASIS [Suspect]
     Indication: DRY EYE
     Dosage: 2 GTT, BID
     Route: 047
     Dates: start: 201308
  2. TIMOLOL [Concomitant]
     Indication: GLAUCOMA
     Dosage: 2 GTT, QAM
     Route: 047
  3. REFRESH PRODUCTS NOS [Concomitant]
     Indication: DRY EYE
     Dosage: UNK
     Route: 047

REACTIONS (1)
  - Lacrimation increased [Recovering/Resolving]
